FAERS Safety Report 5572761-X (Version None)
Quarter: 2007Q4

REPORT INFORMATION
  Report Type: 
  Country: None (occurrence: None)
  Receive Date: 20071222
  Receipt Date: 20071212
  Transmission Date: 20080405
  Serious: Yes (Other)
  Sender: FDA-Public Use
  Company Number: US-PFIZER INC-2007106040

PATIENT
  Sex: Female
  Weight: 53.6 kg

DRUGS (5)
  1. CHANTIX [Suspect]
     Indication: SMOKING CESSATION THERAPY
     Dates: start: 20071127, end: 20071204
  2. PLAVIX [Concomitant]
  3. CRESTOR [Concomitant]
  4. ACETYLSALICYLIC ACID SRT [Concomitant]
  5. CARTIA XT [Concomitant]

REACTIONS (3)
  - CHEST PAIN [None]
  - MYOCARDIAL INFARCTION [None]
  - PAIN IN EXTREMITY [None]
